FAERS Safety Report 7138384-6 (Version None)
Quarter: 2010Q4

REPORT INFORMATION
  Report Type: 
  Country: None (occurrence: None)
  Receive Date: 20101202
  Receipt Date: 20101202
  Transmission Date: 20110411
  Serious: Yes (Other)
  Sender: FDA-Public Use
  Company Number: None

PATIENT
  Age: 42 Year
  Sex: Female
  Weight: 90.7194 kg

DRUGS (1)
  1. ZYRTEC [Suspect]
     Indication: SEASONAL ALLERGY
     Dosage: 10 MG 1XDAY PO
     Route: 048
     Dates: start: 20100515, end: 20101126

REACTIONS (6)
  - DRUG WITHDRAWAL SYNDROME [None]
  - EYE PRURITUS [None]
  - IMPAIRED WORK ABILITY [None]
  - MENTAL DISORDER [None]
  - PRURITUS [None]
  - SLEEP DISORDER DUE TO GENERAL MEDICAL CONDITION, INSOMNIA TYPE [None]
